FAERS Safety Report 8016496-2 (Version None)
Quarter: 2011Q4

REPORT INFORMATION
  Report Type: 
  Country: None (occurrence: None)
  Receive Date: 20111230
  Receipt Date: 20111221
  Transmission Date: 20120403
  Serious: Yes (Other)
  Sender: FDA-Public Use
  Company Number: US-ASTRAZENECA-2010SE55126

PATIENT
  Age: 64 Year
  Sex: Female

DRUGS (1)
  1. CRESTOR [Suspect]
     Route: 048

REACTIONS (8)
  - JOINT INJURY [None]
  - ACCIDENT [None]
  - ARTHRITIS [None]
  - LIMB DISCOMFORT [None]
  - ROAD TRAFFIC ACCIDENT [None]
  - BACK INJURY [None]
  - WEIGHT DECREASED [None]
  - FALL [None]
